FAERS Safety Report 5742444-1 (Version None)
Quarter: 2008Q2

REPORT INFORMATION
  Report Type: 
  Country: None (occurrence: None)
  Receive Date: 20080514
  Receipt Date: 20080514
  Transmission Date: 20081010
  Serious: Yes (Hospitalization)
  Sender: FDA-Public Use
  Company Number: None

PATIENT
  Age: 55 Year
  Sex: Male

DRUGS (2)
  1. FENTANYL-100 [Suspect]
     Indication: PAIN
     Dosage: 50 MCG PER HOUR TOP
     Route: 061
     Dates: start: 20071225, end: 20071226
  2. FENTANYL-100 [Suspect]
     Indication: PAIN
     Dosage: 25 MCG PER HOUR TOP
     Route: 061
     Dates: start: 20071212, end: 20071224

REACTIONS (8)
  - HEART RATE INCREASED [None]
  - HYPOTENSION [None]
  - MIOSIS [None]
  - OXYGEN SATURATION DECREASED [None]
  - RESPIRATORY DEPRESSION [None]
  - SEDATION [None]
  - TREMOR [None]
  - UNRESPONSIVE TO STIMULI [None]
